FAERS Safety Report 10373923 (Version 1)
Quarter: 2014Q1

REPORT INFORMATION
  Report Type: Spontaneous
  Country: US (occurrence: None)
  Receive Date: 20140306
  Receipt Date: 20140306
  Transmission Date: 20141002
  Serious: Yes (Disabling, Other)
  Sender: FDA-Public Use
  Company Number: 163-21880-13011904

PATIENT
  Age: 66 Year
  Sex: Male

DRUGS (6)
  1. REVLIMID [Suspect]
     Indication: WALDENSTROM^S MACROGLOBULINAEMIA
     Route: 048
     Dates: start: 201207, end: 2012
  2. REVLIMID [Suspect]
     Indication: LYMPHOPROLIFERATIVE DISORDER
     Route: 048
     Dates: start: 201207, end: 2012
  3. ACETAMINOPHEN (PARACETAMOL) [Concomitant]
  4. ALBUTEROL (SALBUTAMOL) [Concomitant]
  5. CETIRIZINE (CETIRIZINE) [Concomitant]
  6. FLUTICASONE (FLUTICASONE) [Concomitant]

REACTIONS (1)
  - Pancytopenia [None]
